FAERS Safety Report 23513815 (Version 7)
Quarter: 2024Q3

REPORT INFORMATION
  Report Type: Spontaneous
  Country: HR (occurrence: HR)
  Receive Date: 20240212
  Receipt Date: 20240826
  Transmission Date: 20241017
  Serious: Yes (Other)
  Sender: SANDOZ
  Company Number: HR-002147023-NVSC2021HR042645

PATIENT
  Age: 56 Year
  Sex: Female

DRUGS (42)
  1. ADALIMUMAB [Suspect]
     Active Substance: ADALIMUMAB
     Dosage: UNK
     Route: 065
  2. ADALIMUMAB [Suspect]
     Active Substance: ADALIMUMAB
     Dosage: UNK (UNK)
     Route: 058
  3. ADALIMUMAB [Suspect]
     Active Substance: ADALIMUMAB
     Indication: Generalised pustular psoriasis
     Dosage: UNK (UNK)
     Route: 065
  4. ACITRETIN [Suspect]
     Active Substance: ACITRETIN
     Dosage: UNK
     Route: 065
  5. ACITRETIN [Suspect]
     Active Substance: ACITRETIN
     Dosage: UNK
     Route: 065
  6. ACITRETIN [Suspect]
     Active Substance: ACITRETIN
     Dosage: UNK
     Route: 065
  7. ACITRETIN [Suspect]
     Active Substance: ACITRETIN
     Indication: Generalised pustular psoriasis
     Dosage: UNK (UNK)
     Route: 065
  8. ACITRETIN [Suspect]
     Active Substance: ACITRETIN
     Dosage: UNK (UNK)
     Route: 065
  9. APREMILAST [Suspect]
     Active Substance: APREMILAST
     Dosage: UNK
     Route: 065
  10. APREMILAST [Suspect]
     Active Substance: APREMILAST
     Indication: Generalised pustular psoriasis
     Dosage: UNK (UNK)
     Route: 065
  11. APREMILAST [Suspect]
     Active Substance: APREMILAST
     Dosage: UNK (UNK)
     Route: 065
  12. BILASTINE [Suspect]
     Active Substance: BILASTINE
     Dosage: UNK
     Route: 048
  13. BILASTINE [Suspect]
     Active Substance: BILASTINE
     Indication: Product used for unknown indication
     Dosage: UNK (UNK)
     Route: 048
  14. BILASTINE [Suspect]
     Active Substance: BILASTINE
     Dosage: UNK (UNK)
     Route: 065
  15. CETIRIZINE HYDROCHLORIDE [Suspect]
     Active Substance: CETIRIZINE HYDROCHLORIDE
     Indication: Product used for unknown indication
     Dosage: 10 MG (10 MG 1+1+2 TBL)
     Route: 065
  16. CETIRIZINE HYDROCHLORIDE [Suspect]
     Active Substance: CETIRIZINE HYDROCHLORIDE
     Dosage: 10 MG (10 MG 1+1+2 TBL)
     Route: 065
  17. COSENTYX [Suspect]
     Active Substance: SECUKINUMAB
     Dosage: UNK
     Route: 065
  18. COSENTYX [Suspect]
     Active Substance: SECUKINUMAB
     Indication: Generalised pustular psoriasis
     Dosage: UNK (UNK)
     Route: 065
  19. COSENTYX [Suspect]
     Active Substance: SECUKINUMAB
     Dosage: UNK (UNK)
     Route: 065
  20. DICLOFENAC [Suspect]
     Active Substance: DICLOFENAC
     Dosage: UNK
     Route: 065
  21. DICLOFENAC [Suspect]
     Active Substance: DICLOFENAC
     Indication: Product used for unknown indication
     Dosage: UNK (UNK)
     Route: 065
  22. DICLOFENAC [Suspect]
     Active Substance: DICLOFENAC
     Dosage: UNK (UNK)
     Route: 065
  23. DESLORATADINE [Suspect]
     Active Substance: DESLORATADINE
     Dosage: 10 MG, 1+1+2 TB (TABLET)
     Route: 065
  24. DESLORATADINE [Suspect]
     Active Substance: DESLORATADINE
     Indication: Product used for unknown indication
     Dosage: UNK
     Route: 065
  25. IBUPROFEN [Suspect]
     Active Substance: IBUPROFEN
     Dosage: UNK
     Route: 065
  26. IBUPROFEN [Suspect]
     Active Substance: IBUPROFEN
     Indication: Product used for unknown indication
     Dosage: UNK (UNK)
     Route: 065
  27. IBUPROFEN [Suspect]
     Active Substance: IBUPROFEN
     Dosage: UNK (UNK)
     Route: 065
  28. KETOPROFEN [Suspect]
     Active Substance: KETOPROFEN
     Dosage: UNK
     Route: 016
  29. KETOPROFEN [Suspect]
     Active Substance: KETOPROFEN
     Indication: Product used for unknown indication
     Dosage: UNK (UNK)
     Route: 016
  30. KETOPROFEN [Suspect]
     Active Substance: KETOPROFEN
     Dosage: UNK (UNK)
     Route: 016
  31. LORATADINE [Suspect]
     Active Substance: LORATADINE
     Dosage: UNK
     Route: 065
  32. LORATADINE [Suspect]
     Active Substance: LORATADINE
     Indication: Product used for unknown indication
     Dosage: UNK (UNK)
     Route: 065
  33. LORATADINE [Suspect]
     Active Substance: LORATADINE
     Dosage: UNK (UNK)
     Route: 065
  34. METHOTREXATE [Suspect]
     Active Substance: METHOTREXATE
     Indication: Generalised pustular psoriasis
     Dosage: 15MG (15 MG, UNKNOWN), START DATE: MAY-2020
     Route: 065
  35. METHYLPREDNISOLONE [Suspect]
     Active Substance: METHYLPREDNISOLONE
     Indication: Generalised pustular psoriasis
     Dosage: 8 MG,QD (8 MG, QD),START DATE:AUG-2020
     Route: 065
  36. PANTOPRAZOLE [Suspect]
     Active Substance: PANTOPRAZOLE
     Indication: Product used for unknown indication
     Dosage: 40 MG,QD (20 MG, BID)
     Route: 065
  37. PANTOPRAZOLE [Suspect]
     Active Substance: PANTOPRAZOLE
     Dosage: 40 MG,QD (20 MG, BID)
     Route: 065
  38. PIOGLITAZONE [Suspect]
     Active Substance: PIOGLITAZONE
     Dosage: UNK
     Route: 065
  39. PIOGLITAZONE [Suspect]
     Active Substance: PIOGLITAZONE
     Indication: Product used for unknown indication
     Dosage: UNK (UNK)
     Route: 065
  40. PIOGLITAZONE [Suspect]
     Active Substance: PIOGLITAZONE
     Dosage: UNK (UNK)
     Route: 065
  41. RISANKIZUMAB [Suspect]
     Active Substance: RISANKIZUMAB
     Indication: Generalised pustular psoriasis
     Dosage: UNK (UNK UNK, Q3MO), START DATE: DEC-2019
     Route: 058
  42. RISANKIZUMAB [Suspect]
     Active Substance: RISANKIZUMAB
     Dosage: UNK (UNK UNK, Q3MO), START DATE: DEC-2019
     Route: 058

REACTIONS (14)
  - Inflammatory bowel disease [Recovered/Resolved]
  - Faecal calprotectin increased [Unknown]
  - Face oedema [Unknown]
  - Weight decreased [Recovering/Resolving]
  - Erythema [Recovering/Resolving]
  - Asthenia [Unknown]
  - Myalgia [Unknown]
  - Arthralgia [Unknown]
  - Fatigue [Unknown]
  - Diarrhoea [Recovered/Resolved]
  - Urticaria [Unknown]
  - Drug ineffective [Unknown]
  - Product use in unapproved indication [Unknown]
  - Off label use [Unknown]

NARRATIVE: CASE EVENT DATE: 20191101
